FAERS Safety Report 18215490 (Version 2)
Quarter: 2020Q3

REPORT INFORMATION
  Report Type: Spontaneous
  Country: US (occurrence: US)
  Receive Date: 20200831
  Receipt Date: 20200925
  Transmission Date: 20201103
  Serious: No
  Sender: FDA-Public Use
  Company Number: US-SUNOVION-2020SUN002418

PATIENT
  Sex: Female
  Weight: 61.22 kg

DRUGS (1)
  1. LATUDA [Suspect]
     Active Substance: LURASIDONE HYDROCHLORIDE
     Indication: BIPOLAR DISORDER
     Dosage: 20 MG, QOD
     Route: 048
     Dates: start: 20200212

REACTIONS (2)
  - Fear [Recovered/Resolved]
  - Off label use [Unknown]
